FAERS Safety Report 9538988 (Version 2)
Quarter: 2022Q2

REPORT INFORMATION
  Report Type: Spontaneous
  Country: FR (occurrence: FR)
  Receive Date: 20130920
  Receipt Date: 20220413
  Transmission Date: 20220721
  Serious: Yes (Life-Threatening)
  Sender: FDA-Public Use
  Company Number: FR-009507513-1309FRA005628

PATIENT
  Age: 61 Year
  Sex: Male
  Weight: 65 kg

DRUGS (2)
  1. ZOLINZA [Suspect]
     Active Substance: VORINOSTAT
     Indication: Cutaneous T-cell lymphoma
     Dosage: 400 MG DAILY (CODED AS 4 DF DAILY BY THE HEALTH AUTHORITY)
     Route: 048
     Dates: start: 20121128, end: 20130111
  2. ZOLINZA [Suspect]
     Active Substance: VORINOSTAT
     Dosage: 200 MILLIGRAM, EVERY 4 WEEKS
     Route: 048
     Dates: start: 20130127

REACTIONS (1)
  - Febrile neutropenia [Recovered/Resolved with Sequelae]

NARRATIVE: CASE EVENT DATE: 20130110
